FAERS Safety Report 9625609 (Version 1)
Quarter: 2013Q4

REPORT INFORMATION
  Report Type: Spontaneous
  Country: US (occurrence: None)
  Receive Date: 20131015
  Receipt Date: 20131015
  Transmission Date: 20140711
  Serious: No
  Sender: FDA-Public Use
  Company Number: None

PATIENT
  Age: 53 Year
  Sex: Female

DRUGS (2)
  1. TECFIDERA [Suspect]
     Indication: MULTIPLE SCLEROSIS
     Dosage: 120MG X7 DAYS, 240MG MAINTENA, BID, ORAL
     Route: 048
     Dates: start: 20131002, end: 20131014
  2. LEVOXYL [Concomitant]

REACTIONS (2)
  - Pyrexia [None]
  - Influenza like illness [None]
